FAERS Safety Report 12955183 (Version 1)
Quarter: 2016Q4

REPORT INFORMATION
  Report Type: Spontaneous
  Country: US (occurrence: US)
  Receive Date: 20161118
  Receipt Date: 20161118
  Transmission Date: 20170207
  Serious: No
  Sender: FDA-Public Use
  Company Number: US-PERRIGO-15US012216

PATIENT
  Age: 39 Year
  Sex: Female
  Weight: 68.27 kg

DRUGS (1)
  1. POLYETHYLENE GLYCOL 3350. [Suspect]
     Active Substance: POLYETHYLENE GLYCOL 3350
     Indication: CONSTIPATION
     Dosage: 25.5 G, QD
     Route: 048
     Dates: start: 20151005, end: 20151118

REACTIONS (5)
  - Exposure to unspecified agent [Recovered/Resolved]
  - Abdominal distension [Unknown]
  - Incorrect drug administration duration [Recovered/Resolved]
  - Drug effect decreased [Unknown]
  - Incorrect dose administered [Recovered/Resolved]

NARRATIVE: CASE EVENT DATE: 20151005
